FAERS Safety Report 7499887-8 (Version None)
Quarter: 2011Q2

REPORT INFORMATION
  Report Type: 
  Country: None (occurrence: None)
  Receive Date: 20110524
  Receipt Date: 20110518
  Transmission Date: 20111010
  Serious: Yes (Other)
  Sender: FDA-Public Use
  Company Number: US-ACTELION-A-US2011-48349

PATIENT

DRUGS (2)
  1. TADALAFIL [Concomitant]
  2. TRACLEER [Suspect]
     Indication: PULMONARY ARTERIAL HYPERTENSION
     Dosage: UNK
     Route: 048
     Dates: start: 20080730

REACTIONS (4)
  - AMMONIA INCREASED [None]
  - BLOOD POTASSIUM DECREASED [None]
  - DIZZINESS [None]
  - DYSPNOEA [None]
